FAERS Safety Report 6516938-5 (Version None)
Quarter: 2009Q4

REPORT INFORMATION
  Report Type: 
  Country: None (occurrence: None)
  Receive Date: 20091223
  Receipt Date: 20091211
  Transmission Date: 20100525
  Serious: Yes (Other)
  Sender: FDA-Public Use
  Company Number: US-PFIZER INC-2009294919

PATIENT
  Sex: Male
  Weight: 81.6 kg

DRUGS (2)
  1. GEODON [Suspect]
     Indication: DELUSION
     Route: 048
     Dates: start: 20091016, end: 20091017
  2. ZYPREXA [Concomitant]
     Dosage: UNK

REACTIONS (6)
  - DYSPNOEA [None]
  - FACIAL PALSY [None]
  - FATIGUE [None]
  - MONOPLEGIA [None]
  - RESTLESSNESS [None]
  - VISION BLURRED [None]
